FAERS Safety Report 8035821-X (Version None)
Quarter: 2012Q1

REPORT INFORMATION
  Report Type: 
  Country: None (occurrence: None)
  Receive Date: 20120111
  Receipt Date: 20111228
  Transmission Date: 20120608
  Serious: Yes (Death)
  Sender: FDA-Public Use
  Company Number: US-UCBSA-049155

PATIENT
  Age: 38 Year
  Sex: Male

DRUGS (6)
  1. MORPHINE [Suspect]
     Dosage: INGESTION + INHALATION
  2. DIAZEPAM [Suspect]
     Dosage: INGESTION + INHALATION
  3. ETHANOL [Suspect]
     Dosage: INGESTION + INHALATION
  4. ACETAMINOPHEN AND HYDROCODONE BITARTRATE [Suspect]
     Dosage: INGESTION + INHALATION
  5. COCAINE [Suspect]
     Dosage: INGESTION + INHALATION
  6. TRAMADOL HCL [Suspect]
     Dosage: INGESTION + INHALATION

REACTIONS (1)
  - COMPLETED SUICIDE [None]
